FAERS Safety Report 8853400 (Version 1)
Quarter: 2012Q4

REPORT INFORMATION
  Report Type: 
  Country: ES (occurrence: ES)
  Receive Date: 20121022
  Receipt Date: 20121022
  Transmission Date: 20130627
  Serious: Yes (Hospitalization)
  Sender: FDA-Public Use
  Company Number: ES-PFIZER INC-2012257718

PATIENT
  Sex: Male
  Weight: 76 kg

DRUGS (15)
  1. GENOTROPIN [Suspect]
     Indication: HYPOPITUITARISM
     Dosage: 0.6 mg, 7-WK
     Route: 058
     Dates: start: 20000714
  2. LEVOTHYROXINE [Concomitant]
     Indication: BLOOD THYROID STIMULATING HORMONE DECREASED
     Dosage: UNK
     Dates: start: 19930305
  3. LEVOTHYROXINE [Concomitant]
     Indication: PRIMARY HYPOTHYROIDISM
  4. PREDNISONE [Concomitant]
     Indication: BLOOD CORTICOTROPHIN DECREASED
     Dosage: UNK
     Dates: start: 19930305
  5. BROMOCRIPTINE [Concomitant]
     Indication: ENDOCRINE DISORDER
     Dosage: UNK
     Dates: start: 19930305
  6. TESTOSTERONE ENANTATE [Concomitant]
     Indication: BLOOD LUTEINISING HORMONE DECREASED
     Dosage: UNK
     Dates: start: 19930715
  7. TESTOSTERONE ENANTATE [Concomitant]
     Indication: BLOOD FOLLICLE STIMULATING HORMONE DECREASED
  8. TESTOSTERONE ENANTATE [Concomitant]
     Indication: HYPOGONADISM MALE
  9. ASPIRINE [Concomitant]
     Indication: MYOCARDIAL ISCHAEMIA
     Dosage: UNK
     Dates: start: 19960715
  10. DILTIAZEM [Concomitant]
     Indication: MYOCARDIAL ISCHAEMIA
     Dosage: UNK
     Dates: start: 19960715
  11. SIMVASTATIN [Concomitant]
     Indication: HYPERLIPIDAEMIA
     Dosage: UNK
     Dates: start: 19960715
  12. OMEPRAZOLE [Concomitant]
     Indication: GASTRIC DISORDER
     Dosage: UNK
     Dates: start: 19960115
  13. TESTOSTERONE [Concomitant]
     Indication: BLOOD LUTEINISING HORMONE DECREASED
     Dosage: UNK
     Dates: start: 20001222
  14. TESTOSTERONE [Concomitant]
     Indication: BLOOD FOLLICLE STIMULATING HORMONE DECREASED
  15. TESTOSTERONE [Concomitant]
     Indication: HYPOGONADISM MALE

REACTIONS (1)
  - Orchitis [Unknown]
